FAERS Safety Report 8301944-0 (Version None)
Quarter: 2012Q2

REPORT INFORMATION
  Report Type: 
  Country: None (occurrence: None)
  Receive Date: 20120418
  Receipt Date: 20120418
  Transmission Date: 20120825
  Serious: No
  Sender: FDA-Public Use
  Company Number: None

PATIENT
  Sex: Female

DRUGS (1)
  1. PRILOSEC [Suspect]
     Dosage: 40 MG QD ORAL
     Route: 048
     Dates: end: 20090612

REACTIONS (1)
  - DRUG INEFFECTIVE [None]
